FAERS Safety Report 5606655-8 (Version None)
Quarter: 2008Q1

REPORT INFORMATION
  Report Type: 
  Country: None (occurrence: None)
  Receive Date: 20080129
  Receipt Date: 20080122
  Transmission Date: 20080703
  Serious: Yes (Death)
  Sender: FDA-Public Use
  Company Number: US-ROCHE-543158

PATIENT
  Age: 45 Year
  Sex: Female

DRUGS (2)
  1. CAPECITABINE [Suspect]
     Route: 065
     Dates: start: 20070228, end: 20080101
  2. LAPATINIB [Suspect]
     Route: 048
     Dates: start: 20070323, end: 20080101

REACTIONS (1)
  - DEATH [None]
